FAERS Safety Report 6401198-6 (Version None)
Quarter: 2009Q4

REPORT INFORMATION
  Report Type: 
  Country: None (occurrence: None)
  Receive Date: 20091015
  Receipt Date: 20091008
  Transmission Date: 20100525
  Serious: Yes (Death, Hospitalization)
  Sender: FDA-Public Use
  Company Number: FR-ROCHE-647010

PATIENT
  Sex: Female

DRUGS (12)
  1. CAPECITABINE [Suspect]
     Indication: GASTRIC CANCER
     Route: 065
  2. EPIRUBICIN [Suspect]
     Indication: GASTRIC CANCER
     Route: 065
  3. CISPLATIN [Suspect]
     Indication: GASTRIC CANCER
     Route: 065
  4. ATACAND [Concomitant]
     Route: 048
  5. KARDEGIC [Concomitant]
     Route: 048
  6. TEMESTA [Concomitant]
     Indication: ANXIOLYTIC THERAPY
     Route: 048
  7. TRANSIPEG [Concomitant]
     Indication: CONSTIPATION
     Route: 048
  8. NEXIUM [Concomitant]
     Route: 048
  9. PRIMPERAN [Concomitant]
     Indication: ANTIEMETIC SUPPORTIVE CARE
     Route: 048
  10. DOLIPRANE [Concomitant]
     Indication: ANALGESIC THERAPY
     Route: 048
  11. TANAKAN [Concomitant]
     Route: 048
  12. LYSOPAINE [Concomitant]
     Indication: ANALGESIC THERAPY
     Route: 048

REACTIONS (2)
  - GASTRIC CANCER [None]
  - GENERAL PHYSICAL CONDITION ABNORMAL [None]
